FAERS Safety Report 26075662 (Version 2)
Quarter: 2025Q4

REPORT INFORMATION
  Report Type: Spontaneous
  Country: US (occurrence: US)
  Receive Date: 20251121
  Receipt Date: 20251221
  Transmission Date: 20260117
  Serious: No
  Sender: Day One Biopharmaceuticals
  Company Number: US-Day One Biopharmaceuticals Inc.-2025US001777

PATIENT

DRUGS (2)
  1. OJEMDA [Suspect]
     Active Substance: TOVORAFENIB
     Indication: Brain neoplasm
     Dosage: 175 MG, WEEKLY
     Route: 048
     Dates: start: 202407, end: 20251111
  2. OJEMDA [Suspect]
     Active Substance: TOVORAFENIB
     Indication: Metastases to meninges

REACTIONS (1)
  - Melanocytic naevus [Not Recovered/Not Resolved]
